FAERS Safety Report 7218030-3 (Version None)
Quarter: 2011Q1

REPORT INFORMATION
  Report Type: 
  Country: None (occurrence: None)
  Receive Date: 20110110
  Receipt Date: 20110104
  Transmission Date: 20110831
  Serious: Yes (Death, Other)
  Sender: FDA-Public Use
  Company Number: US-WATSON-2010-16319

PATIENT
  Sex: Male

DRUGS (10)
  1. HYDROXYZINE PAMOATE [Suspect]
     Indication: PRODUCT USED FOR UNKNOWN INDICATION
     Dosage: 50 MG, BID
     Route: 048
     Dates: start: 20101021
  2. BUSPIRONE HYDROCHLORIDE [Suspect]
     Indication: ANXIETY
     Dosage: 15 MG, TID
     Route: 048
     Dates: end: 20101101
  3. GABAPENTIN [Suspect]
     Indication: ANXIETY
  4. BUSPIRONE HYDROCHLORIDE [Suspect]
     Dosage: 1TABLET, TID
     Route: 048
     Dates: start: 20091022
  5. MIRTAZAPINE [Suspect]
     Indication: ANXIETY
  6. GABAPENTIN [Suspect]
     Indication: PAIN
     Dosage: 100 MG, TID
     Route: 048
     Dates: start: 20100925, end: 20101101
  7. TRAZODONE [Suspect]
     Indication: DEPRESSION
     Dosage: 50 MG, QHS
     Route: 048
     Dates: start: 20100925, end: 20101119
  8. MIRTAZAPINE [Suspect]
     Indication: DEPRESSION
     Dosage: 15 MG, QHS
     Route: 048
     Dates: start: 20091022, end: 20101101
  9. VERAPAMIL [Suspect]
     Indication: HYPERTENSION
     Dosage: 180 MG, DAILY
     Route: 065
  10. TRAZODONE [Suspect]
     Indication: ANXIETY

REACTIONS (15)
  - DRUG INEFFECTIVE [None]
  - DEPRESSION [None]
  - FEAR OF WEIGHT GAIN [None]
  - HYPOTONIA [None]
  - ANXIETY [None]
  - COMPLETED SUICIDE [None]
  - CHEST PAIN [None]
  - ABDOMINAL DISCOMFORT [None]
  - DYSPEPSIA [None]
  - GASTROINTESTINAL DISORDER [None]
  - DIARRHOEA [None]
  - ABDOMINAL PAIN [None]
  - HEADACHE [None]
  - DECREASED APPETITE [None]
  - WEIGHT DECREASED [None]
